FAERS Safety Report 24785568 (Version 1)
Quarter: 2024Q4

REPORT INFORMATION
  Report Type: Spontaneous
  Country: US (occurrence: None)
  Receive Date: 20241227
  Receipt Date: 20241227
  Transmission Date: 20250115
  Serious: Yes (Disabling)
  Sender: Public
  Company Number: None

PATIENT
  Age: 80 Year
  Sex: Male
  Weight: 99 kg

DRUGS (1)
  1. ERYTHROMYCIN [Suspect]
     Active Substance: ERYTHROMYCIN
     Indication: Corneal abrasion
     Dosage: 1 DROP EVERY 6 HOURS TOPICAL
     Route: 061
     Dates: start: 20241213, end: 20241220

REACTIONS (2)
  - Chalazion [None]
  - Product dosage form issue [None]

NARRATIVE: CASE EVENT DATE: 20241220
